FAERS Safety Report 10200394 (Version 2)
Quarter: 2014Q2

REPORT INFORMATION
  Report Type: Spontaneous
  Country: IT (occurrence: IT)
  Receive Date: 20140528
  Receipt Date: 20140605
  Transmission Date: 20141212
  Serious: Yes (Hospitalization)
  Sender: FDA-Public Use
  Company Number: IT-ROCHE-1408829

PATIENT
  Age: 81 Year
  Sex: Male

DRUGS (7)
  1. CEFTRIAXONE [Suspect]
     Indication: HYPERPYREXIA
     Route: 030
     Dates: start: 20140423, end: 20140423
  2. LASIX [Concomitant]
     Route: 048
  3. SPIRIVA [Concomitant]
     Route: 055
  4. ALIFLUS [Concomitant]
     Dosage: ALIFLUS DISKUS
     Route: 055
  5. PLAVIX [Concomitant]
     Route: 048
  6. BISOPROLOL [Concomitant]
     Route: 048
  7. AMIODARONE [Concomitant]
     Route: 048

REACTIONS (2)
  - Dyspnoea [Recovered/Resolved]
  - Rash [Recovered/Resolved]
